FAERS Safety Report 7203570-3 (Version None)
Quarter: 2010Q4

REPORT INFORMATION
  Report Type: 
  Country: None (occurrence: None)
  Receive Date: 20101230
  Receipt Date: 20101209
  Transmission Date: 20110411
  Serious: No
  Sender: FDA-Public Use
  Company Number: US-B.I. PHARMACEUTICALS,INC./RIDGEFIELD-2010-BP-14116BP

PATIENT
  Age: 77 Year
  Sex: Female

DRUGS (4)
  1. PRADAXA [Suspect]
     Indication: ATRIAL FIBRILLATION
     Dosage: 300 MG
     Route: 048
     Dates: start: 20101124, end: 20101206
  2. PULMICORT [Concomitant]
     Indication: ASTHMA
     Route: 055
  3. EXFORGE [Concomitant]
     Indication: HYPERTENSION
     Route: 048
  4. MULTAQ [Concomitant]
     Indication: ARRHYTHMIA
     Route: 048

REACTIONS (2)
  - ARTHRALGIA [None]
  - HAEMATOCHEZIA [None]
